FAERS Safety Report 6924654-0 (Version None)
Quarter: 2010Q3

REPORT INFORMATION
  Report Type: 
  Country: None (occurrence: None)
  Receive Date: 20100816
  Receipt Date: 20100805
  Transmission Date: 20110219
  Serious: Yes (Hospitalization)
  Sender: FDA-Public Use
  Company Number: 2008BI022904

PATIENT
  Age: 60 Year
  Sex: Female

DRUGS (3)
  1. AVONEX [Suspect]
     Indication: MULTIPLE SCLEROSIS
     Route: 030
     Dates: start: 19980114, end: 20030830
  2. AVONEX [Suspect]
     Route: 030
     Dates: start: 20030830, end: 20090109
  3. AVONEX [Suspect]
     Route: 030
     Dates: start: 20100319

REACTIONS (2)
  - ARTHRALGIA [None]
  - DEVICE DISLOCATION [None]
